FAERS Safety Report 9495227 (Version 1)
Quarter: 2013Q3

REPORT INFORMATION
  Report Type: Spontaneous
  Country: GB (occurrence: None)
  Receive Date: 20130828
  Receipt Date: 20130828
  Transmission Date: 20140515
  Serious: No
  Sender: FDA-Public Use
  Company Number: GER/UKI/13/0034298

PATIENT
  Age: 48 Year
  Sex: Male

DRUGS (3)
  1. ATORVASTATIN (ATORVASTATIN) [Suspect]
     Indication: CELLULITIS
     Dosage: 80MG, 1 IN 1 D) ORAL
     Route: 048
     Dates: start: 20100813, end: 20110707
  2. ERYTHROMYCIN (ERYTHROMYCIN) [Suspect]
     Indication: CELLULITIS
     Dosage: 500MG, 2 IN 1 D, ORAL
     Route: 048
  3. RIFAMPICIN (RIFAMPICIN) [Concomitant]

REACTIONS (3)
  - Drug interaction [None]
  - General physical health deterioration [None]
  - Blood creatine phosphokinase increased [None]
